FAERS Safety Report 14687888 (Version 4)
Quarter: 2018Q4

REPORT INFORMATION
  Report Type: Spontaneous
  Country: JP (occurrence: JP)
  Receive Date: 20180328
  Receipt Date: 20181207
  Transmission Date: 20190204
  Serious: Yes (Hospitalization)
  Sender: FDA-Public Use
  Company Number: PHJP2018JP007009

PATIENT
  Age: 60 Year
  Sex: Male
  Weight: 77.9 kg

DRUGS (5)
  1. RECOMODULIN [Concomitant]
     Active Substance: THROMBOMODULIN ALFA
     Indication: PRODUCT USED FOR UNKNOWN INDICATION
     Dosage: UNK
     Route: 065
     Dates: start: 20180307
  2. LOCOID [Concomitant]
     Active Substance: HYDROCORTISONE BUTYRATE
     Indication: PALMAR-PLANTAR ERYTHRODYSAESTHESIA SYNDROME
     Dosage: UNK
     Route: 061
     Dates: start: 20161127
  3. AMLODIN [Concomitant]
     Active Substance: AMLODIPINE BESYLATE
     Indication: HYPERTENSION
     Dosage: 5 MG, UNK
     Route: 048
     Dates: start: 20180227
  4. NIVOLUMAB [Suspect]
     Active Substance: NIVOLUMAB
     Indication: PRODUCT USED FOR UNKNOWN INDICATION
     Dosage: UNK
     Route: 065
  5. VOTRIENT [Suspect]
     Active Substance: PAZOPANIB HYDROCHLORIDE
     Indication: RENAL CELL CARCINOMA
     Dosage: 800 MG, QD
     Route: 048
     Dates: start: 20180220, end: 20180305

REACTIONS (9)
  - Rash [Recovered/Resolved]
  - Stomatitis [Recovered/Resolved]
  - Renal impairment [Recovered/Resolved]
  - Malaise [Unknown]
  - Dyspnoea [Unknown]
  - Platelet count decreased [Recovered/Resolved]
  - Pyrexia [Recovering/Resolving]
  - Anuria [Recovering/Resolving]
  - Blood creatinine increased [Unknown]

NARRATIVE: CASE EVENT DATE: 20180305
